FAERS Safety Report 6173769-6 (Version None)
Quarter: 2009Q2

REPORT INFORMATION
  Report Type: 
  Country: None (occurrence: None)
  Receive Date: 20090429
  Receipt Date: 20090429
  Transmission Date: 20091009
  Serious: Yes (Hospitalization)
  Sender: FDA-Public Use
  Company Number: None

PATIENT
  Sex: Female
  Weight: 97.0698 kg

DRUGS (3)
  1. MERETEK UBT KIT (W/ PRANACTIN) [Suspect]
     Indication: HELICOBACTER PYLORI IDENTIFICATION TEST
  2. C-UREA 75 MG [Suspect]
  3. PHENYLALANINE 84MG [Suspect]

REACTIONS (4)
  - DIZZINESS [None]
  - FEELING HOT [None]
  - HYPERHIDROSIS [None]
  - PALLOR [None]
